FAERS Safety Report 9778194 (Version 1)
Quarter: 2013Q4

REPORT INFORMATION
  Report Type: Spontaneous
  Country: RU (occurrence: RU)
  Receive Date: 20131223
  Receipt Date: 20131223
  Transmission Date: 20140711
  Serious: Yes (Other)
  Sender: FDA-Public Use
  Company Number: RU-ROCHE-1323726

PATIENT
  Sex: Female

DRUGS (2)
  1. LUCENTIS [Suspect]
     Indication: PRODUCT USED FOR UNKNOWN INDICATION
     Route: 050
  2. DOSTINEX [Concomitant]

REACTIONS (4)
  - Swelling face [Unknown]
  - Tachycardia [Unknown]
  - Headache [Unknown]
  - Blood pressure decreased [Unknown]
